FAERS Safety Report 8112168-4 (Version None)
Quarter: 2012Q1

REPORT INFORMATION
  Report Type: 
  Country: None (occurrence: None)
  Receive Date: 20120203
  Receipt Date: 20120123
  Transmission Date: 20120608
  Serious: Yes (Other)
  Sender: FDA-Public Use
  Company Number: CA-JNJFOC-20120200430

PATIENT
  Sex: Female
  Weight: 49 kg

DRUGS (3)
  1. REMICADE [Suspect]
     Indication: COLITIS ULCERATIVE
     Route: 042
  2. ORTHO TRI-CYCLEN [Concomitant]
  3. TRAZODONE HCL [Concomitant]

REACTIONS (3)
  - SYNOVITIS [None]
  - SPONDYLITIS [None]
  - ARTHRALGIA [None]
